FAERS Safety Report 7729958-X (Version None)
Quarter: 2011Q3

REPORT INFORMATION
  Report Type: 
  Country: None (occurrence: None)
  Receive Date: 20110906
  Receipt Date: 20110901
  Transmission Date: 20111222
  Serious: Yes (Other)
  Sender: FDA-Public Use
  Company Number: ES-PFIZER INC-2011205707

PATIENT
  Age: 82 Year
  Sex: Female

DRUGS (3)
  1. CHLORTHALIDONE [Concomitant]
     Indication: HYPERTENSION
     Route: 048
  2. PANTOPRAZOLE [Suspect]
     Dosage: 20 MG, UNK
     Dates: start: 20110810, end: 20110812
  3. LORAZEPAM [Concomitant]
     Route: 048

REACTIONS (3)
  - HAEMATOCHEZIA [None]
  - ABDOMINAL PAIN [None]
  - DIZZINESS [None]
